FAERS Safety Report 25981627 (Version 1)
Quarter: 2025Q4

REPORT INFORMATION
  Report Type: Spontaneous
  Country: JP (occurrence: JP)
  Receive Date: 20251031
  Receipt Date: 20251031
  Transmission Date: 20260117
  Serious: Yes (Death, Hospitalization, Other)
  Sender: ZHEJIANG XIANJU PHARMACEUTICAL CO., LTD.
  Company Number: JP-Hisun Pharmaceuticals USA Inc.-000817

PATIENT
  Age: 8 Decade
  Sex: Male
  Weight: 51.5 kg

DRUGS (4)
  1. PREDNISOLONE [Suspect]
     Active Substance: PREDNISOLONE
     Indication: Prophylaxis
     Dosage: TAPERED 5 MG PER 1-2 WEEK
     Route: 048
  2. FUROSEMIDE [Concomitant]
     Active Substance: FUROSEMIDE
     Indication: Ascites
  3. SPIRONOLACTONE [Concomitant]
     Active Substance: SPIRONOLACTONE
     Indication: Ascites
  4. TOLVAPTAN [Concomitant]
     Active Substance: TOLVAPTAN
     Indication: Ascites

REACTIONS (5)
  - Condition aggravated [Unknown]
  - Ascites [Unknown]
  - Thrombosis [Unknown]
  - Intestinal ischaemia [Unknown]
  - Intestinal perforation [Fatal]
